FAERS Safety Report 5772949-9 (Version None)
Quarter: 2008Q2

REPORT INFORMATION
  Report Type: 
  Country: None (occurrence: None)
  Receive Date: 20080613
  Receipt Date: 20080603
  Transmission Date: 20081010
  Serious: Yes (Hospitalization, Other)
  Sender: FDA-Public Use
  Company Number: US-PFIZER INC-2008047470

PATIENT
  Sex: Male
  Weight: 85.3 kg

DRUGS (7)
  1. DIFLUCAN [Suspect]
     Indication: ORAL FUNGAL INFECTION
     Dates: start: 20080403, end: 20080405
  2. DIFLUCAN [Suspect]
     Indication: ORAL CANDIDIASIS
  3. VALIUM [Suspect]
     Indication: BACK PAIN
  4. LASIX [Suspect]
     Indication: SWELLING
  5. SEREVENT [Concomitant]
  6. SPIRIVA [Concomitant]
  7. QVAR 40 [Concomitant]

REACTIONS (7)
  - FORMICATION [None]
  - JOINT INJURY [None]
  - MUSCLE SPASMS [None]
  - PAIN [None]
  - SWELLING [None]
  - URINE OUTPUT INCREASED [None]
  - WEIGHT DECREASED [None]
